FAERS Safety Report 8778849 (Version 4)
Quarter: 2012Q4

REPORT INFORMATION
  Report Type: 
  Country: GB (occurrence: GB)
  Receive Date: 20120912
  Receipt Date: 20121008
  Transmission Date: 20130627
  Serious: Yes (Hospitalization)
  Sender: FDA-Public Use
  Company Number: PHHO2012GB010743

PATIENT
  Age: 53 Year
  Sex: Male

DRUGS (14)
  1. TKI258 [Suspect]
     Indication: METASTATIC RENAL CELL CARCINOMA
     Dosage: 200 mg, UNK
     Route: 048
     Dates: start: 20120608, end: 20120718
  2. TKI258 [Suspect]
     Dosage: 200 mg, UNK
     Route: 048
     Dates: end: 20120913
  3. AFINITOR [Suspect]
     Indication: METASTATIC RENAL CELL CARCINOMA
     Dosage: 5 mg, UNK
     Route: 048
     Dates: start: 20120608, end: 20120718
  4. AFINITOR [Suspect]
     Dosage: 5 mg, UNK
     Route: 048
     Dates: end: 20120913
  5. NOZINAN [Concomitant]
     Indication: NAUSEA
     Dosage: 25 mg, UNK
  6. CO-DANTHRAMER [Concomitant]
     Indication: CONSTIPATION
     Dosage: 2 DF, BID
     Route: 065
     Dates: start: 20120623
  7. METOCLOPRAMIDE [Concomitant]
     Indication: NAUSEA
     Dosage: 20 mg, UNK
     Route: 062
     Dates: start: 20120329
  8. LANSOPRAZOLE [Concomitant]
     Indication: PROPHYLAXIS
     Dosage: 30 mg, QD
     Dates: start: 20120624
  9. MOVICOL [Concomitant]
     Indication: CONSTIPATION
  10. ONDANSETRON [Concomitant]
     Indication: NAUSEA
     Dosage: UNK
     Dates: start: 20120419
  11. DIAMORPHINE [Concomitant]
     Indication: PAIN
     Dosage: 50 mg, UNK
     Dates: start: 20120619
  12. SEVREDOL [Concomitant]
     Indication: PAIN
     Dosage: 50 mg, UNK
     Dates: start: 20120828
  13. LORAZEPAM [Concomitant]
     Dosage: 1 mg, UNK
     Dates: start: 20120828
  14. FENTANYL [Concomitant]
     Indication: PAIN

REACTIONS (6)
  - Vomiting [Unknown]
  - Nausea [Recovered/Resolved]
  - Lethargy [Recovered/Resolved]
  - Deep vein thrombosis [Recovered/Resolved]
  - Malaise [Unknown]
  - Hypercalcaemia [Unknown]
